FAERS Safety Report 12081014 (Version 4)
Quarter: 2016Q1

REPORT INFORMATION
  Report Type: Spontaneous
  Country: JP (occurrence: JP)
  Receive Date: 20160216
  Receipt Date: 20160331
  Transmission Date: 20160526
  Serious: Yes (Life-Threatening, Hospitalization, Other)
  Sender: FDA-Public Use
  Company Number: JP-SA-2016SA028698

PATIENT
  Age: 69 Year
  Sex: Female
  Weight: 42 kg

DRUGS (10)
  1. MYSLEE [Suspect]
     Active Substance: ZOLPIDEM TARTRATE
     Indication: INSOMNIA
     Route: 048
     Dates: end: 20160203
  2. MYSLEE [Suspect]
     Active Substance: ZOLPIDEM TARTRATE
     Indication: SUICIDE ATTEMPT
     Route: 048
     Dates: end: 20160203
  3. LIPIDIL [Concomitant]
     Active Substance: FENOFIBRATE
     Dosage: LIPIDIL (FENOFIBRATE) TABLET, 80 MG
     Route: 065
     Dates: end: 20160205
  4. MYSLEE [Suspect]
     Active Substance: ZOLPIDEM TARTRATE
     Indication: SUICIDE ATTEMPT
     Route: 048
     Dates: start: 20160204, end: 20160204
  5. MICAMLO [Suspect]
     Active Substance: AMLODIPINE BESYLATE\TELMISARTAN
     Indication: HYPERTENSION
     Route: 048
     Dates: start: 20110914, end: 20160203
  6. REMINYL [Concomitant]
     Active Substance: GALANTAMINE
     Dosage: REMINYL (GALANTAMINE HYDROBROMIDE) ORODISPERSIBLE TABLET, 8 MG
     Route: 048
     Dates: end: 20160205
  7. MYSLEE [Suspect]
     Active Substance: ZOLPIDEM TARTRATE
     Indication: INSOMNIA
     Route: 048
     Dates: start: 20160204, end: 20160204
  8. MICAMLO [Suspect]
     Active Substance: AMLODIPINE BESYLATE\TELMISARTAN
     Indication: SUICIDE ATTEMPT
     Route: 048
     Dates: start: 20110914, end: 20160203
  9. MICAMLO [Suspect]
     Active Substance: AMLODIPINE BESYLATE\TELMISARTAN
     Indication: HYPERTENSION
     Route: 048
     Dates: start: 20160204, end: 20160204
  10. MICAMLO [Suspect]
     Active Substance: AMLODIPINE BESYLATE\TELMISARTAN
     Indication: SUICIDE ATTEMPT
     Route: 048
     Dates: start: 20160204, end: 20160204

REACTIONS (7)
  - Suicide attempt [Unknown]
  - Defect conduction intraventricular [Recovered/Resolved]
  - Intentional overdose [Unknown]
  - Atrial fibrillation [Recovered/Resolved]
  - Shock [Recovered/Resolved]
  - Hypothermia [Recovered/Resolved]
  - Altered state of consciousness [Recovered/Resolved]

NARRATIVE: CASE EVENT DATE: 20160204
